FAERS Safety Report 9515178 (Version 1)
Quarter: 2013Q1

REPORT INFORMATION
  Report Type: Spontaneous
  Country: US (occurrence: None)
  Receive Date: 20130305
  Receipt Date: 20130305
  Transmission Date: 20140127
  Serious: Yes (Other)
  Sender: FDA-Public Use
  Company Number: 163-21880-12101797

PATIENT
  Age: 57 Year
  Sex: Female

DRUGS (9)
  1. REVLIMID (LENALIDOMIDE) (25 MILLIGRAM, CAPSULES) [Suspect]
     Indication: PLASMA CELL MYELOMA
     Dosage: 25 MG, 21 IN 21 D, PO
     Route: 048
     Dates: start: 20120912
  2. AMLODIPINE BESYLATE - BENAZEPRIL HCL (AMLODIPINE BESYLATE W/BENAZEPRIL HYDROCHLOR.) (UNKNOWN)? [Concomitant]
  3. ROBITUSSIN CHEST CONGESTION (GUAIFENESIN) (UNKNOWN) [Concomitant]
  4. DEXAMETHASONE (DEXAMETHASONE) (UNKNOWN) [Concomitant]
  5. COUMADIN (WARFARIN SODIUM) (UNKNOWN) [Concomitant]
  6. CALTRATE 600 + D (CALCITE D) (UNKNOWN) [Concomitant]
  7. METOPROLOL TARTRATE (METOPROLOL TARTRATE) (UNKNOWN) [Concomitant]
  8. NONI JUICE (MORINDA CITRIFOLIA FRUIT JUICE) (UNKNOWN)? [Concomitant]
  9. TRAMADOL HCL (TRAMADOL HYDROCHLORIDE) (UNKNOWN) [Concomitant]

REACTIONS (2)
  - Upper-airway cough syndrome [None]
  - Fatigue [None]
